FAERS Safety Report 21994303 (Version 1)
Quarter: 2023Q1

REPORT INFORMATION
  Report Type: Spontaneous
  Country: US (occurrence: US)
  Receive Date: 20230215
  Receipt Date: 20230215
  Transmission Date: 20230418
  Serious: Yes (Hospitalization)
  Sender: FDA-Public Use
  Company Number: US-MYLANLABS-2023M1015152

PATIENT
  Age: 35 Year
  Sex: Male

DRUGS (3)
  1. RIFAMPIN [Suspect]
     Active Substance: RIFAMPIN
     Indication: Disseminated Bacillus Calmette-Guerin infection
     Dosage: UNK
     Route: 043
  2. ETHAMBUTOL [Suspect]
     Active Substance: ETHAMBUTOL HYDROCHLORIDE
     Indication: Disseminated Bacillus Calmette-Guerin infection
     Dosage: UNK
     Route: 043
  3. ISONIAZID [Suspect]
     Active Substance: ISONIAZID
     Indication: Disseminated Bacillus Calmette-Guerin infection
     Dosage: UNK
     Route: 043

REACTIONS (1)
  - Drug ineffective [Unknown]
